FAERS Safety Report 9154379 (Version 4)
Quarter: 2014Q1

REPORT INFORMATION
  Report Type: Report from Study
  Country: ES (occurrence: ES)
  Receive Date: 20130311
  Receipt Date: 20140110
  Transmission Date: 20141002
  Serious: Yes (Other)
  Sender: FDA-Public Use
  Company Number: ES-SHIRE-ALL1-2013-01177

PATIENT
  Age: 13 Year
  Sex: Male
  Weight: 56 kg

DRUGS (7)
  1. 489 (LISDEXAMFETAMINE DIMESYLATE) [Suspect]
     Indication: ATTENTION DEFICIT/HYPERACTIVITY DISORDER
     Dosage: 70 MG, 1X/DAY:QD
     Route: 048
     Dates: start: 20120807, end: 20130221
  2. 489 (LISDEXAMFETAMINE DIMESYLATE) [Suspect]
     Dosage: 30 MG, 1X/DAY:QD
     Route: 048
     Dates: start: 20120228, end: 20120305
  3. 489 (LISDEXAMFETAMINE DIMESYLATE) [Suspect]
     Dosage: 50 MG, 1X/DAY:QD
     Route: 048
     Dates: start: 20120306, end: 20120312
  4. 489 (LISDEXAMFETAMINE DIMESYLATE) [Suspect]
     Dosage: 70 MG, 1X/DAY:QD
     Route: 048
     Dates: start: 20120313, end: 20120626
  5. 489 (LISDEXAMFETAMINE DIMESYLATE) [Suspect]
     Dosage: 50 MG, 1X/DAY:QD
     Route: 048
     Dates: start: 20120627, end: 20120806
  6. 489 (LISDEXAMFETAMINE DIMESYLATE) [Suspect]
     Dosage: 50 MG, 1X/WEEK
     Route: 048
     Dates: start: 20130222, end: 20130902
  7. IRON [Concomitant]
     Indication: ANAEMIA
     Dosage: UNK, UNKNOWN
     Route: 065

REACTIONS (1)
  - Syncope [Recovered/Resolved]
